FAERS Safety Report 11334166 (Version 1)
Quarter: 2015Q3

REPORT INFORMATION
  Report Type: Spontaneous
  Country: US (occurrence: US)
  Receive Date: 20150803
  Receipt Date: 20150803
  Transmission Date: 20151125
  Serious: Yes (Hospitalization)
  Sender: FDA-Public Use
  Company Number: US-SA-2014SA135713

PATIENT
  Age: 56 Year
  Sex: Female

DRUGS (1)
  1. AMBIEN CR [Suspect]
     Active Substance: ZOLPIDEM TARTRATE
     Indication: INSOMNIA
     Route: 048
     Dates: start: 20140807

REACTIONS (5)
  - Amnesia [Recovered/Resolved]
  - Disorientation [Unknown]
  - Feeling abnormal [Recovered/Resolved]
  - Altered state of consciousness [Unknown]
  - Abnormal behaviour [Unknown]
